FAERS Safety Report 9034339 (Version 1)
Quarter: 2013Q1

REPORT INFORMATION
  Report Type: Spontaneous
  Country: US (occurrence: None)
  Receive Date: 20130115
  Receipt Date: 20130115
  Transmission Date: 20140127
  Serious: Yes (Death, Hospitalization)
  Sender: FDA-Public Use
  Company Number: B0858375A

PATIENT
  Age: 63 Year
  Sex: Female

DRUGS (6)
  1. CLINDAMYCIN [Suspect]
     Indication: STAPHYLOCOCCAL INFECTION
     Dosage: UNK / UNK / ORAL?4 DAYS
     Route: 048
  2. VANCOMYCIN [Suspect]
     Dosage: UNK / UNK / INTRAVENOUS?1 MONTHS
     Route: 042
  3. RIFAMPICIN [Suspect]
     Indication: POST PROCEDURAL INFECTION
     Dosage: UNK / UNK / ORAL?1 MONTHS
     Route: 048
  4. THYROXINE SODIUM [Concomitant]
  5. ATORVASTATIN CALCIUM [Concomitant]
  6. HYDROCODONE + PARACETAMOL [Concomitant]

REACTIONS (12)
  - Drug reaction with eosinophilia and systemic symptoms [None]
  - Renal failure acute [None]
  - Nephritis allergic [None]
  - Drug intolerance [None]
  - Glomerulonephritis [None]
  - Renal tubular necrosis [None]
  - Cholelithiasis [None]
  - Pancreatitis [None]
  - Hepatic function abnormal [None]
  - Multi-organ failure [None]
  - Hypoxia [None]
  - Metabolic acidosis [None]
